FAERS Safety Report 22357448 (Version 1)
Quarter: 2023Q2

REPORT INFORMATION
  Report Type: Report from Study
  Country: US (occurrence: US)
  Receive Date: 20230524
  Receipt Date: 20230524
  Transmission Date: 20230722
  Serious: Yes (Other)
  Sender: FDA-Public Use
  Company Number: US-ABBVIE-4276277

PATIENT
  Sex: Female

DRUGS (1)
  1. SKYRIZI [Suspect]
     Active Substance: RISANKIZUMAB-RZAA
     Indication: Psoriasis
     Route: 058

REACTIONS (8)
  - Dental implantation [Unknown]
  - Stomatitis [Unknown]
  - Tooth extraction [Recovering/Resolving]
  - Dental prosthesis placement [Recovering/Resolving]
  - Sinusitis [Recovered/Resolved]
  - Speech disorder [Unknown]
  - Medical device site ulcer [Recovering/Resolving]
  - Gastric disorder [Unknown]

NARRATIVE: CASE EVENT DATE: 20230101
